FAERS Safety Report 8270042-7 (Version None)
Quarter: 2012Q2

REPORT INFORMATION
  Report Type: 
  Country: None (occurrence: None)
  Receive Date: 20120410
  Receipt Date: 20120404
  Transmission Date: 20120825
  Serious: Yes (Other)
  Sender: FDA-Public Use
  Company Number: NL-JNJFOC-20120402693

PATIENT

DRUGS (12)
  1. ASPIRIN [Concomitant]
     Indication: ACUTE MYOCARDIAL INFARCTION
     Route: 065
  2. CLOPIDOGREL [Concomitant]
     Dosage: FOR ATLEAST 1 MONTH AFTER BMS OR 6-12 MONTHS AFTER SES
     Route: 065
  3. ASPIRIN [Concomitant]
     Route: 065
  4. CLOPIDOGREL [Concomitant]
     Indication: PERCUTANEOUS CORONARY INTERVENTION
     Route: 065
  5. REOPRO [Suspect]
     Dosage: BOLUS AFTER STENT PLACEMENT
     Route: 042
  6. CLOPIDOGREL [Concomitant]
     Indication: ACUTE MYOCARDIAL INFARCTION
     Dosage: FOR ATLEAST 1 MONTH AFTER BMS OR 6-12 MONTHS AFTER SES
     Route: 065
  7. HEPARIN [Concomitant]
     Dosage: INTRAVENOUS BOLUS OF HEPARIN
     Route: 042
  8. ASPIRIN [Concomitant]
     Route: 065
  9. REOPRO [Suspect]
     Indication: PERCUTANEOUS CORONARY INTERVENTION
     Dosage: INFUSION FOR 12 HOURS
     Route: 042
  10. HEPARIN [Concomitant]
     Indication: ACUTE MYOCARDIAL INFARCTION
     Dosage: FIXED BOLUS OF UNFRACTIONATED HEPARIN
     Route: 042
  11. CLOPIDOGREL [Concomitant]
     Route: 065
  12. ASPIRIN [Concomitant]
     Indication: PERCUTANEOUS CORONARY INTERVENTION
     Route: 065

REACTIONS (1)
  - THROMBOSIS IN DEVICE [None]
